FAERS Safety Report 19597744 (Version 1)
Quarter: 2021Q3

REPORT INFORMATION
  Report Type: Spontaneous
  Country: US (occurrence: US)
  Receive Date: 20210722
  Receipt Date: 20210722
  Transmission Date: 20211014
  Serious: Yes (Hospitalization, Other)
  Sender: FDA-Public Use
  Company Number: None

PATIENT
  Age: 35 Year
  Sex: Male
  Weight: 77 kg

DRUGS (3)
  1. AVASTIN [Concomitant]
     Active Substance: BEVACIZUMAB
     Dates: start: 20210621
  2. OLAPARIB. [Suspect]
     Active Substance: OLAPARIB
     Indication: GLIOBLASTOMA
     Route: 048
     Dates: start: 20210625, end: 20210721
  3. TEMOZOLAMIDE [Concomitant]
     Active Substance: TEMOZOLOMIDE
     Dates: start: 20210118

REACTIONS (2)
  - Myalgia [None]
  - Pancytopenia [None]

NARRATIVE: CASE EVENT DATE: 20210721
